FAERS Safety Report 6297900-7 (Version None)
Quarter: 2009Q3

REPORT INFORMATION
  Report Type: 
  Country: None (occurrence: None)
  Receive Date: 20090805
  Receipt Date: 20090728
  Transmission Date: 20100115
  Serious: Yes (Hospitalization)
  Sender: FDA-Public Use
  Company Number: NL-WYE-H10411409

PATIENT
  Sex: Female

DRUGS (5)
  1. PANTOZOL [Suspect]
     Indication: HELICOBACTER INFECTION
     Route: 048
     Dates: start: 20081231, end: 20090107
  2. CLARITHROMYCIN [Suspect]
     Indication: HELICOBACTER INFECTION
     Route: 048
     Dates: start: 20081231, end: 20090107
  3. STRUMAZOL [Suspect]
     Indication: BASEDOW'S DISEASE
     Route: 048
     Dates: start: 20071110, end: 20090216
  4. STRUMAZOL [Suspect]
     Dosage: UNKNOWN
     Route: 048
     Dates: start: 20090601
  5. AMOXICILLIN [Suspect]
     Indication: HELICOBACTER INFECTION
     Route: 048
     Dates: start: 20081231, end: 20090107

REACTIONS (2)
  - HEPATIC PAIN [None]
  - HEPATOMEGALY [None]
